FAERS Safety Report 5092596-4 (Version None)
Quarter: 2006Q3

REPORT INFORMATION
  Report Type: 
  Country: None (occurrence: None)
  Receive Date: 20060727
  Receipt Date: 20060614
  Transmission Date: 20061208
  Serious: Yes (Other)
  Sender: FDA-Public Use
  Company Number: 2006075909

PATIENT
  Age: 66 Year
  Sex: Female
  Weight: 102.5129 kg

DRUGS (2)
  1. LYRICA [Suspect]
     Indication: NEUROPATHY
     Dosage: 150 MG (75 MG,2 IN 1 D),ORAL
     Route: 048
     Dates: start: 20060515
  2. BYETTA [Suspect]
     Indication: DIABETES MELLITUS NON-INSULIN-DEPENDENT
     Dosage: 10 MCG (5 MCG,2 IN 1 D),SUBCUTANEOUS
     Route: 058
     Dates: start: 20060515

REACTIONS (1)
  - NAUSEA [None]
